FAERS Safety Report 13576309 (Version 1)
Quarter: 2017Q2

REPORT INFORMATION
  Report Type: Report from Study
  Country: CN (occurrence: CN)
  Receive Date: 20170524
  Receipt Date: 20170524
  Transmission Date: 20170830
  Serious: Yes (Death)
  Sender: FDA-Public Use
  Company Number: CN-ROCHE-1855719

PATIENT
  Sex: Male
  Weight: 65 kg

DRUGS (1)
  1. AVASTIN [Suspect]
     Active Substance: BEVACIZUMAB
     Indication: COLON CANCER
     Route: 041
     Dates: start: 20151228, end: 20161209

REACTIONS (6)
  - Toothache [Unknown]
  - Loose tooth [Unknown]
  - Tooth extraction [Unknown]
  - Dyspnoea [Unknown]
  - Asthenia [Unknown]
  - Death [Fatal]
